FAERS Safety Report 16626224 (Version 1)
Quarter: 2019Q3

REPORT INFORMATION
  Report Type: Spontaneous
  Country: DE (occurrence: DE)
  Receive Date: 20190724
  Receipt Date: 20190724
  Transmission Date: 20191004
  Serious: Yes (Hospitalization, Congenital Anomaly, Other)
  Sender: FDA-Public Use
  Company Number: DE-TEVA-2019-DE-1081171

PATIENT
  Age: 1 Day
  Sex: Male
  Weight: 4.01 kg

DRUGS (1)
  1. ARIPIPRAZOL [Suspect]
     Active Substance: ARIPIPRAZOLE
     Indication: BIPOLAR DISORDER
     Dosage: 5 [MG/D ]
     Route: 064
     Dates: start: 20171023, end: 20180804

REACTIONS (1)
  - Hypospadias [Not Recovered/Not Resolved]

NARRATIVE: CASE EVENT DATE: 20180804
